FAERS Safety Report 15543462 (Version 1)
Quarter: 2018Q4

REPORT INFORMATION
  Report Type: Spontaneous
  Country: US (occurrence: US)
  Receive Date: 20181023
  Receipt Date: 20181023
  Transmission Date: 20190205
  Serious: Yes (Other)
  Sender: FDA-Public Use
  Company Number: US-PURDUE PHARMA-USA-2018-0143608

PATIENT
  Sex: Male

DRUGS (1)
  1. OXYCONTIN [Suspect]
     Active Substance: OXYCODONE HYDROCHLORIDE
     Indication: PRODUCT USED FOR UNKNOWN INDICATION
     Dosage: 460 MG, DAILY
     Route: 048

REACTIONS (6)
  - Amnesia [Unknown]
  - Rhinorrhoea [Unknown]
  - Drug dependence [Unknown]
  - Dry mouth [Unknown]
  - Dental caries [Unknown]
  - Diarrhoea [Unknown]
